FAERS Safety Report 12644272 (Version 2)
Quarter: 2016Q3

REPORT INFORMATION
  Report Type: Report from Study
  Country: FR (occurrence: FR)
  Receive Date: 20160811
  Receipt Date: 20160913
  Transmission Date: 20161109
  Serious: Yes (Hospitalization)
  Sender: FDA-Public Use
  Company Number: FR-ABBVIE-16K-056-1692839-00

PATIENT
  Age: 43 Year
  Sex: Male
  Weight: 75 kg

DRUGS (2)
  1. HUMIRA [Suspect]
     Active Substance: ADALIMUMAB
     Indication: CROHN^S DISEASE
     Route: 058
     Dates: start: 20160423
  2. CEFIXIME. [Concomitant]
     Active Substance: CEFIXIME
     Indication: OROPHARYNGEAL PAIN
     Dates: start: 20140912, end: 20141008

REACTIONS (5)
  - Hyperthermia [Unknown]
  - Constipation [Unknown]
  - Abdominal pain [Unknown]
  - Gastrointestinal obstruction [Recovering/Resolving]
  - Pharyngeal erythema [Unknown]

NARRATIVE: CASE EVENT DATE: 20160526
